FAERS Safety Report 4891066-3 (Version None)
Quarter: 2006Q1

REPORT INFORMATION
  Report Type: 
  Country: None (occurrence: None)
  Receive Date: 20060123
  Receipt Date: 20060105
  Transmission Date: 20060701
  Serious: Yes (Hospitalization)
  Sender: FDA-Public Use
  Company Number: 221184

PATIENT
  Age: 53 Year
  Sex: Male
  Weight: 87 kg

DRUGS (3)
  1. AVASTIN [Suspect]
     Indication: COLORECTAL CANCER METASTATIC
     Dosage: 650 MG, Q3W, INTRAVENOUS
     Route: 042
     Dates: start: 20051106, end: 20051202
  2. CAPECITABINE (CAPECITABINE) [Suspect]
     Indication: COLORECTAL CANCER METASTATIC
     Dosage: 4300 MG, QD, ORAL
     Route: 048
     Dates: start: 20051107
  3. IRINOTECAN HCL [Suspect]
     Indication: COLORECTAL CANCER METASTATIC
     Dosage: 500 MG, Q3W, INTRAVENOUS
     Route: 042

REACTIONS (2)
  - CHEST PAIN [None]
  - TROPONIN INCREASED [None]
